FAERS Safety Report 7556737-9 (Version None)
Quarter: 2011Q2

REPORT INFORMATION
  Report Type: 
  Country: None (occurrence: None)
  Receive Date: 20110620
  Receipt Date: 20110616
  Transmission Date: 20111010
  Serious: Yes (Other)
  Sender: FDA-Public Use
  Company Number: CN-PFIZER INC-2011131843

PATIENT
  Age: 40 Year
  Sex: Female

DRUGS (1)
  1. NORVASC [Suspect]
     Dosage: 35 TABLETS
     Route: 048
     Dates: start: 20110614

REACTIONS (3)
  - SUICIDE ATTEMPT [None]
  - OVERDOSE [None]
  - HYPOTENSION [None]
